FAERS Safety Report 21857324 (Version 1)
Quarter: 2023Q1

REPORT INFORMATION
  Report Type: Spontaneous
  Country: IT (occurrence: IT)
  Receive Date: 20230113
  Receipt Date: 20230113
  Transmission Date: 20230418
  Serious: Yes (Hospitalization)
  Sender: FDA-Public Use
  Company Number: IT-SUN PHARMACEUTICAL INDUSTRIES LTD-2022RR-372652

PATIENT
  Age: 69 Year
  Sex: Male

DRUGS (2)
  1. MORPHINE [Suspect]
     Active Substance: MORPHINE
     Indication: Product used for unknown indication
     Dosage: 8 VIALS OF 10 MILLIGRAMS IN 3 HOURS INTRAVENOUSLY
     Route: 042
     Dates: start: 20221023, end: 20221023
  2. VALIUM [Suspect]
     Active Substance: DIAZEPAM
     Indication: Product used for unknown indication
     Dosage: 2 VIALS IN 3 HOURS INTRAVENOUS
     Route: 042
     Dates: start: 20221023, end: 20221023

REACTIONS (3)
  - Sopor [Recovering/Resolving]
  - Medication error [Recovering/Resolving]
  - Respiratory depression [Recovering/Resolving]

NARRATIVE: CASE EVENT DATE: 20221023
